FAERS Safety Report 6546670-3 (Version None)
Quarter: 2010Q1

REPORT INFORMATION
  Report Type: 
  Country: None (occurrence: None)
  Receive Date: 20100119
  Receipt Date: 20100105
  Transmission Date: 20100710
  Serious: Yes (Death)
  Sender: FDA-Public Use
  Company Number: TPA2009A03869

PATIENT
  Age: 81 Year
  Sex: Female

DRUGS (1)
  1. PREVPAC [Suspect]
     Indication: GASTRIC ULCER
     Dates: start: 20091022

REACTIONS (1)
  - RESPIRATORY DISTRESS [None]
